FAERS Safety Report 19126275 (Version 1)
Quarter: 2021Q2

REPORT INFORMATION
  Report Type: Spontaneous
  Country: US (occurrence: US)
  Receive Date: 20210413
  Receipt Date: 20210413
  Transmission Date: 20210717
  Serious: No
  Sender: FDA-Public Use
  Company Number: None

PATIENT
  Age: 56 Year
  Sex: Female
  Weight: 53.55 kg

DRUGS (2)
  1. MEDROXYPROGESTERONE 2.5 MG TABLETS [Suspect]
     Active Substance: MEDROXYPROGESTERONE
     Indication: HOT FLUSH
     Dosage: ?          QUANTITY:0.5 TABLET(S);?
     Route: 048
     Dates: start: 20210318, end: 20210402
  2. ESTRADIOL 0.0375 MG PATCH [Suspect]
     Active Substance: ESTRADIOL
     Indication: HOT FLUSH
     Dosage: ?          OTHER FREQUENCY:PATCH TWICE WEEKLY;?
     Route: 061
     Dates: start: 20210318, end: 20210402

REACTIONS (7)
  - Skin exfoliation [None]
  - Throat tightness [None]
  - Urticaria [None]
  - Pruritus [None]
  - Erythema [None]
  - Swelling face [None]
  - Malaise [None]

NARRATIVE: CASE EVENT DATE: 20210402
